FAERS Safety Report 4581977-0 (Version None)
Quarter: 2005Q1

REPORT INFORMATION
  Report Type: 
  Country: None (occurrence: None)
  Receive Date: 20050119
  Receipt Date: 20040709
  Transmission Date: 20050727
  Serious: Yes (Other)
  Sender: FDA-Public Use
  Company Number: US-JNJFOC-20040405407

PATIENT
  Age: 53 Year
  Sex: Female
  Weight: 53.0709 kg

DRUGS (12)
  1. DOXIL [Suspect]
     Indication: BREAST CANCER METASTATIC
     Dosage: 80 MG, 1 IN 3 WEEK, INTRAVENOUS
     Route: 042
     Dates: start: 20040324, end: 20040414
  2. ZOMETA [Concomitant]
  3. SYNTHROID [Concomitant]
  4. LORTAB [Concomitant]
  5. COUMADIN [Concomitant]
  6. ZANTAC [Concomitant]
  7. DURAGESIC [Concomitant]
  8. DEXAMETHASONE [Concomitant]
  9. MULTIVITAMIN [Concomitant]
  10. NEURONTIN [Concomitant]
  11. METOCLOPRAMIDE (METOCLOPRAMIDE) TABLETS [Concomitant]
  12. COMPAZINE [Concomitant]

REACTIONS (1)
  - PALMAR-PLANTAR ERYTHRODYSAESTHESIA SYNDROME [None]
